FAERS Safety Report 9954401 (Version 1)
Quarter: 2014Q1

REPORT INFORMATION
  Report Type: Spontaneous
  Country: US (occurrence: US)
  Receive Date: 20140304
  Receipt Date: 20140304
  Transmission Date: 20141002
  Serious: No
  Sender: FDA-Public Use
  Company Number: US-ENDO PHARMACEUTICALS INC.-SUTR20130002

PATIENT
  Sex: 0

DRUGS (1)
  1. SULFAMETHOXAZOLE/TRIMETHOPRIM TABLETS [Suspect]
     Indication: URINARY TRACT INFECTION
     Dosage: 800/160 MG
     Route: 048

REACTIONS (2)
  - Angioedema [Unknown]
  - Hypersensitivity [Unknown]
